FAERS Safety Report 18487018 (Version 2)
Quarter: 2020Q4

REPORT INFORMATION
  Report Type: Spontaneous
  Country: GB (occurrence: GB)
  Receive Date: 20201110
  Receipt Date: 20201117
  Transmission Date: 20210114
  Serious: Yes (Hospitalization)
  Sender: FDA-Public Use
  Company Number: GB-BAYER-2020-233948

PATIENT
  Sex: Female

DRUGS (3)
  1. MIRENA [Suspect]
     Active Substance: LEVONORGESTREL
     Dosage: 20 ?G PER DAY CONTINUOUSLY
     Route: 015
     Dates: start: 2009
  2. MIRENA [Suspect]
     Active Substance: LEVONORGESTREL
     Dosage: 20 ?G PER DAY CONTINUOUSLY
     Route: 015
     Dates: start: 20151103
  3. PREGABALIN. [Concomitant]
     Active Substance: PREGABALIN
     Dosage: 500 ML, QD

REACTIONS (10)
  - Syncope [Unknown]
  - Pregnancy with contraceptive device [None]
  - Sepsis [Unknown]
  - Drug ineffective [None]
  - Mass [Unknown]
  - Intestinal perforation [Unknown]
  - Bladder disorder [Unknown]
  - Device dislocation [Unknown]
  - Pain [Unknown]
  - Tracheal disorder [Unknown]

NARRATIVE: CASE EVENT DATE: 201511
